FAERS Safety Report 20049230 (Version 1)
Quarter: 2021Q4

REPORT INFORMATION
  Report Type: Spontaneous
  Country: US (occurrence: None)
  Receive Date: 20211109
  Receipt Date: 20211109
  Transmission Date: 20220304
  Serious: Yes (Hospitalization, Other)
  Sender: FDA-Public Use
  Company Number: None

PATIENT
  Age: 39 Year
  Sex: Female
  Weight: 60.8 kg

DRUGS (2)
  1. PRIVIGEN [Suspect]
     Active Substance: HUMAN IMMUNOGLOBULIN G
     Indication: Immune tolerance induction
     Route: 041
     Dates: start: 20211108, end: 20211108
  2. PRIVIGEN [Suspect]
     Active Substance: HUMAN IMMUNOGLOBULIN G
     Indication: Immune tolerance induction
     Route: 041
     Dates: start: 20211108, end: 20211108

REACTIONS (9)
  - Infusion related reaction [None]
  - Headache [None]
  - Nausea [None]
  - Discomfort [None]
  - Hyperhidrosis [None]
  - Pain [None]
  - Blood pressure increased [None]
  - Seizure [None]
  - Oxygen saturation decreased [None]

NARRATIVE: CASE EVENT DATE: 20211108
